FAERS Safety Report 8497070 (Version 6)
Quarter: 2013Q3

REPORT INFORMATION
  Report Type: Spontaneous
  Country: US (occurrence: US)
  Receive Date: 20120406
  Receipt Date: 20130711
  Transmission Date: 20140515
  Serious: Yes (Death, Other)
  Sender: FDA-Public Use
  Company Number: US-PFIZER INC-2012083938

PATIENT
  Age: 56 Year
  Sex: Male

DRUGS (4)
  1. SERTRALINE HCL [Suspect]
     Dosage: 25 MG, 1X/DAY (ONE 25 MG TABLET)
     Route: 048
     Dates: start: 20100604
  2. SERTRALINE HCL [Suspect]
     Dosage: 50 MG, ONE TABLET AT BED TIME
     Route: 048
     Dates: start: 20100608
  3. ALPRAZOLAM [Concomitant]
     Dosage: 0.25 MG, THREE TIMES DAILY AS NEEDED
     Route: 048
     Dates: start: 20100608
  4. XANAX [Concomitant]
     Dosage: 0.25 MG, ONE HALF TO ONE TABLET THREE TIMES DAILY
     Route: 048
     Dates: start: 20100608

REACTIONS (2)
  - Completed suicide [Fatal]
  - Homicide [Unknown]
